FAERS Safety Report 12753452 (Version 1)
Quarter: 2016Q3

REPORT INFORMATION
  Report Type: Spontaneous
  Country: JP (occurrence: JP)
  Receive Date: 20160916
  Receipt Date: 20160916
  Transmission Date: 20161109
  Serious: Yes (Hospitalization, Other)
  Sender: FDA-Public Use
  Company Number: JP-AMGEN-JPNSP2016125866

PATIENT
  Age: 54 Year
  Weight: 63 kg

DRUGS (13)
  1. CALSED [Suspect]
     Active Substance: AMRUBICIN HYDROCHLORIDE
     Indication: SMALL CELL LUNG CANCER
     Dosage: 55 MG, QD
     Route: 041
     Dates: start: 20150721, end: 20150723
  2. CALSED [Suspect]
     Active Substance: AMRUBICIN HYDROCHLORIDE
     Dosage: 55 MG, QD
     Route: 041
     Dates: start: 20151005, end: 20151007
  3. PARIET [Concomitant]
     Active Substance: RABEPRAZOLE SODIUM
     Indication: GASTRITIS PROPHYLAXIS
     Dosage: 10 MG, QD
     Route: 048
     Dates: start: 20150721
  4. G-LASTA [Suspect]
     Active Substance: PEGFILGRASTIM
     Dosage: 3.6 MG, QD
     Route: 058
     Dates: start: 20150917, end: 20150917
  5. G-LASTA [Suspect]
     Active Substance: PEGFILGRASTIM
     Dosage: 3.6 MG, QD
     Route: 058
     Dates: start: 20151008, end: 20151008
  6. TRAZODONE [Concomitant]
     Active Substance: TRAZODONE HYDROCHLORIDE
     Indication: INSOMNIA
     Dosage: 25 MG, QD
     Route: 048
     Dates: start: 20150929, end: 20151126
  7. CALSED [Suspect]
     Active Substance: AMRUBICIN HYDROCHLORIDE
     Dosage: 55 MG, QD
     Route: 041
     Dates: start: 20150914, end: 20150916
  8. RINDERON                           /00008501/ [Concomitant]
     Active Substance: BETAMETHASONE
     Indication: INCREASED APPETITE
     Dosage: 2 MG, QD
     Dates: start: 20150831, end: 20151026
  9. G-LASTA [Suspect]
     Active Substance: PEGFILGRASTIM
     Indication: COLONY STIMULATING FACTOR PROPHYLAXIS
     Dosage: 3.6 MG, QD
     Route: 058
     Dates: start: 20150724, end: 20150724
  10. G-LASTA [Suspect]
     Active Substance: PEGFILGRASTIM
     Dosage: 3.6 MG, QD
     Route: 058
     Dates: start: 20150820, end: 20150820
  11. CALSED [Suspect]
     Active Substance: AMRUBICIN HYDROCHLORIDE
     Dosage: 55 MG, QD
     Route: 041
     Dates: start: 20150817, end: 20150819
  12. CRAVIT [Concomitant]
     Active Substance: LEVOFLOXACIN
     Indication: ANTIBIOTIC PROPHYLAXIS
     Dosage: 500 MG, QD
     Route: 048
     Dates: start: 20151019, end: 20151026
  13. ROHYPNOL [Concomitant]
     Active Substance: FLUNITRAZEPAM
     Indication: INSOMNIA
     Dosage: 1 MG, QD
     Route: 048
     Dates: start: 20150914, end: 20151026

REACTIONS (1)
  - Interstitial lung disease [Recovered/Resolved]

NARRATIVE: CASE EVENT DATE: 20151026
